FAERS Safety Report 8252218-8 (Version None)
Quarter: 2012Q2

REPORT INFORMATION
  Report Type: 
  Country: None (occurrence: None)
  Receive Date: 20120402
  Receipt Date: 20110906
  Transmission Date: 20120825
  Serious: No
  Sender: FDA-Public Use
  Company Number: US-ABBOTT-11P-163-0852169-00

PATIENT
  Sex: Male
  Weight: 118.04 kg

DRUGS (2)
  1. ANDROGEL [Suspect]
     Indication: BLOOD TESTOSTERONE DECREASED
     Dosage: DAILY DOSE 5 GRAM
     Dates: start: 20090101, end: 20110801
  2. UNKNOWN MEDICATION [Concomitant]
     Indication: HYPERTENSION

REACTIONS (2)
  - DEPRESSED MOOD [None]
  - ASTHENIA [None]
